FAERS Safety Report 10029145 (Version 2)
Quarter: 2014Q2

REPORT INFORMATION
  Report Type: Spontaneous
  Country: US (occurrence: US)
  Receive Date: 20140321
  Receipt Date: 20140423
  Transmission Date: 20141212
  Serious: No
  Sender: FDA-Public Use
  Company Number: US-LUNDBECK-DKLU1097844

PATIENT
  Age: 7 Year
  Sex: Male

DRUGS (5)
  1. ONFI (ORAL SUSPENSION) [Suspect]
     Indication: ANXIETY
     Dates: start: 20140207
  2. ONFI [Concomitant]
     Indication: ANXIETY
     Route: 048
     Dates: start: 201303
  3. ONFI [Concomitant]
     Route: 048
     Dates: start: 201303
  4. ONFI [Concomitant]
     Route: 048
     Dates: start: 20140310
  5. ONFI [Concomitant]
     Route: 048
     Dates: start: 20140310

REACTIONS (2)
  - Insomnia [Recovered/Resolved]
  - Psychomotor hyperactivity [Recovered/Resolved]
